FAERS Safety Report 9013054 (Version 1)
Quarter: 2013Q1

REPORT INFORMATION
  Report Type: Spontaneous
  Country: US (occurrence: US)
  Receive Date: 20130114
  Receipt Date: 20130114
  Transmission Date: 20140127
  Serious: Yes (Other)
  Sender: FDA-Public Use
  Company Number: CHPA2013US000601

PATIENT
  Age: 10 Year
  Sex: Female
  Weight: 24.94 kg

DRUGS (1)
  1. TRIAMINIC FEVER REDUCER PAIN RELIEVER [Suspect]
     Dosage: 2 TSP, ONCE/SINGLE
     Route: 048
     Dates: start: 20130103

REACTIONS (1)
  - Hallucination [Unknown]
